FAERS Safety Report 10568287 (Version 1)
Quarter: 2014Q4

REPORT INFORMATION
  Report Type: Spontaneous
  Country: US (occurrence: US)
  Receive Date: 20141106
  Receipt Date: 20141106
  Transmission Date: 20150529
  Serious: Yes (Other)
  Sender: FDA-Public Use
  Company Number: US-SA-2014SA149046

PATIENT
  Age: 66 Year
  Sex: Female

DRUGS (2)
  1. LANTUS SOLOSTAR [Suspect]
     Active Substance: INSULIN GLARGINE
     Indication: TYPE 2 DIABETES MELLITUS
     Route: 065
     Dates: start: 201410
  2. SOLOSTAR [Concomitant]
     Active Substance: DEVICE

REACTIONS (3)
  - Macular degeneration [Unknown]
  - Memory impairment [Unknown]
  - Drug administration error [Unknown]
